FAERS Safety Report 5598790-8 (Version None)
Quarter: 2007Q4

REPORT INFORMATION
  Report Type: 
  Country: None (occurrence: None)
  Receive Date: 20071226
  Receipt Date: 20071102
  Transmission Date: 20080405
  Serious: No
  Sender: FDA-Public Use
  Company Number: 2007PV033673

PATIENT
  Age: 64 Year
  Weight: 129.2752 kg

DRUGS (17)
  1. SYMLIN [Suspect]
     Indication: TYPE 2 DIABETES MELLITUS
     Dosage: 120 MCG, BID, SC
     Route: 058
     Dates: start: 20070901
  2. HUMALOG [Concomitant]
  3. LANTUS [Concomitant]
  4. DUO NEBULIZER [Concomitant]
  5. OXYGEN [Concomitant]
  6. ATENOLOL [Concomitant]
  7. FUROSEMIDE [Concomitant]
  8. ASPIRIN [Concomitant]
  9. DAILY VITAMINS [Concomitant]
  10. LISINOPRIL [Concomitant]
  11. MORPHINE [Concomitant]
  12. LIPITOR [Concomitant]
  13. CYMBALTA [Concomitant]
  14. CALCIUM [Concomitant]
  15. KLOR-CON [Concomitant]
  16. HYDROCORTISONE [Concomitant]
  17. PRILOSEC [Concomitant]

REACTIONS (1)
  - DYSPNOEA [None]
